FAERS Safety Report 7585267-3 (Version None)
Quarter: 2011Q2

REPORT INFORMATION
  Report Type: 
  Country: None (occurrence: None)
  Receive Date: 20110629
  Receipt Date: 20110629
  Transmission Date: 20111010
  Serious: Yes (Other)
  Sender: FDA-Public Use
  Company Number: None

PATIENT
  Age: 69 Year
  Sex: Female
  Weight: 86.4 kg

DRUGS (1)
  1. PRADAXA [Suspect]
     Indication: ATRIAL FIBRILLATION
     Dosage: 150 MG 2X
     Dates: start: 20110201, end: 20110301

REACTIONS (6)
  - DYSPNOEA [None]
  - JOINT SWELLING [None]
  - FALL [None]
  - INFLAMMATION [None]
  - IRRITABLE BOWEL SYNDROME [None]
  - CONTUSION [None]
